FAERS Safety Report 25318164 (Version 1)
Quarter: 2025Q2

REPORT INFORMATION
  Report Type: Report from Study
  Country: US (occurrence: US)
  Receive Date: 20250515
  Receipt Date: 20250515
  Transmission Date: 20250717
  Serious: Yes (Disabling)
  Sender: Unknown Manufacturer
  Company Number: US-IONIS PHARMACEUTICALS, INC.-2025IS001439

PATIENT

DRUGS (1)
  1. TRYNGOLZA [Suspect]
     Active Substance: OLEZARSEN SODIUM
     Indication: Familial hypertriglyceridaemia
     Dosage: 80 MILLIGRAM, Q1M
     Route: 058
     Dates: start: 20250402

REACTIONS (1)
  - Fatigue [Recovered/Resolved]

NARRATIVE: CASE EVENT DATE: 20250402
